FAERS Safety Report 7998875-2 (Version None)
Quarter: 2011Q4

REPORT INFORMATION
  Report Type: 
  Country: None (occurrence: None)
  Receive Date: 20111221
  Receipt Date: 20111216
  Transmission Date: 20120403
  Serious: Yes (Hospitalization)
  Sender: FDA-Public Use
  Company Number: US-GLAXOSMITHKLINE-A0955771A

PATIENT
  Age: 42 Year
  Sex: Female

DRUGS (2)
  1. ARIXTRA [Suspect]
     Indication: PULMONARY EMBOLISM
     Route: 058
     Dates: start: 20100101, end: 20111001
  2. LANTUS [Concomitant]

REACTIONS (3)
  - PAIN [None]
  - ASTHENIA [None]
  - MYALGIA [None]
